FAERS Safety Report 15830225 (Version 3)
Quarter: 2020Q2

REPORT INFORMATION
  Report Type: Report from Study
  Country: US (occurrence: US)
  Receive Date: 20190115
  Receipt Date: 20200630
  Transmission Date: 20200713
  Serious: Yes (Other)
  Sender: FDA-Public Use
  Company Number: PHEH2019US001700

PATIENT
  Age: 33 Year
  Sex: Male

DRUGS (2)
  1. GILENYA [Suspect]
     Active Substance: FINGOLIMOD HYDROCHLORIDE
     Indication: MULTIPLE SCLEROSIS
     Dosage: 0.5 MG, QD
     Route: 048
     Dates: start: 20180607
  2. GILENYA [Suspect]
     Active Substance: FINGOLIMOD HYDROCHLORIDE
     Dosage: 0.5 MG, QOD
     Route: 048

REACTIONS (6)
  - Multiple sclerosis relapse [Recovering/Resolving]
  - Peripheral coldness [Recovered/Resolved]
  - Balance disorder [Recovered/Resolved]
  - Hypoaesthesia [Recovered/Resolved]
  - Cough [Recovering/Resolving]
  - Vitamin D increased [Unknown]

NARRATIVE: CASE EVENT DATE: 20181009
